FAERS Safety Report 6441964-4 (Version None)
Quarter: 2009Q4

REPORT INFORMATION
  Report Type: 
  Country: None (occurrence: None)
  Receive Date: 20091110
  Receipt Date: 20090904
  Transmission Date: 20100525
  Serious: No
  Sender: FDA-Public Use
  Company Number: 1000008690

PATIENT
  Age: 65 Year
  Sex: Female

DRUGS (1)
  1. SAVELLA [Suspect]
     Dates: end: 20090820

REACTIONS (1)
  - FEELING ABNORMAL [None]
